FAERS Safety Report 5274637-4 (Version None)
Quarter: 2007Q1

REPORT INFORMATION
  Report Type: 
  Country: None (occurrence: None)
  Receive Date: 20070320
  Receipt Date: 20070308
  Transmission Date: 20070707
  Serious: Yes (Hospitalization)
  Sender: FDA-Public Use
  Company Number: 2007PV030859

PATIENT
  Age: 57 Year
  Sex: Female
  Weight: 84.8226 kg

DRUGS (11)
  1. BYETTA [Suspect]
     Indication: DIABETES MELLITUS NON-INSULIN-DEPENDENT
     Dosage: SEE IMAGE
     Route: 058
     Dates: start: 20060401, end: 20060501
  2. BYETTA [Suspect]
     Indication: DIABETES MELLITUS NON-INSULIN-DEPENDENT
     Dosage: SEE IMAGE
     Route: 058
     Dates: start: 20060501
  3. COREG [Concomitant]
  4. PREMARIN [Concomitant]
  5. BENICAR [Concomitant]
  6. NEXIUM [Concomitant]
  7. CRESTOR [Concomitant]
  8. ZOLOFT [Concomitant]
  9. AVANDIA [Concomitant]
  10. GLUCOPHAGE [Concomitant]
  11. VITAMIN CAP [Concomitant]

REACTIONS (7)
  - INCORRECT DOSE ADMINISTERED [None]
  - INCREASED APPETITE [None]
  - NAUSEA [None]
  - PNEUMONIA [None]
  - UVEITIS [None]
  - VOMITING [None]
  - WEIGHT DECREASED [None]
